FAERS Safety Report 4411831-6 (Version None)
Quarter: 2004Q2

REPORT INFORMATION
  Report Type: 
  Country: None (occurrence: None)
  Receive Date: 20040630
  Receipt Date: 20040330
  Transmission Date: 20050107
  Serious: No
  Sender: FDA-Public Use
  Company Number: 04P-163-0255198-00

PATIENT
  Age: 47 Year
  Sex: Female
  Weight: 78.0187 kg

DRUGS (4)
  1. HUMIRA [Suspect]
     Indication: RHEUMATOID ARTHRITIS
     Dosage: 40 MG, 1 IN 2 WK, SUBCUTANEOUS
     Route: 058
     Dates: start: 20030723
  2. CODEINE [Concomitant]
  3. BUCINDOLOL HYDROCHLORIDE [Concomitant]
  4. CYCLOBENZAPRINE HYDROCHLORIDE [Concomitant]

REACTIONS (5)
  - DIZZINESS [None]
  - HYPOAESTHESIA [None]
  - KERATOCONJUNCTIVITIS SICCA [None]
  - PARAESTHESIA [None]
  - VISUAL DISTURBANCE [None]
